FAERS Safety Report 20687902 (Version 11)
Quarter: 2022Q3

REPORT INFORMATION
  Report Type: Spontaneous
  Country: CA (occurrence: CA)
  Receive Date: 20220408
  Receipt Date: 20220811
  Transmission Date: 20221026
  Serious: Yes (Other)
  Sender: FDA-Public Use
  Company Number: CA-CELLTRION INC.-2022CA004292

PATIENT

DRUGS (15)
  1. INFLECTRA [Suspect]
     Active Substance: INFLIXIMAB-DYYB
     Indication: Colitis ulcerative
     Dosage: 5 MG/KG, 0, 2, 6 WEEKS THEN EVERY 8 WEEKS
     Route: 042
     Dates: start: 20220214, end: 20220329
  2. INFLECTRA [Suspect]
     Active Substance: INFLIXIMAB-DYYB
     Dosage: 5 MG/KG 0, 2, 6 WEEKS THEN EVERY 8 WEEKS
     Route: 042
     Dates: start: 20220228
  3. INFLECTRA [Suspect]
     Active Substance: INFLIXIMAB-DYYB
     Dosage: 5 MG/KG 0, 2, 6 WEEKS THEN EVERY 8 WEEKS
     Route: 042
     Dates: start: 20220329
  4. INFLECTRA [Suspect]
     Active Substance: INFLIXIMAB-DYYB
     Dosage: 10 MG/KG, 1 STAT DOSE THEN Q 8 WEEKS
     Route: 042
     Dates: start: 20220425, end: 20220425
  5. INFLECTRA [Suspect]
     Active Substance: INFLIXIMAB-DYYB
     Dosage: 10 MG/KG, EVERY 8 WEEKS
     Route: 042
     Dates: start: 20220425, end: 20220524
  6. INFLECTRA [Suspect]
     Active Substance: INFLIXIMAB-DYYB
     Dosage: 5 MG/KG, EVERY 8 WEEKS, WEEK 0, 2, 6 THEN Q 8 WEEKS
     Route: 042
     Dates: start: 20220524
  7. PREDNISONE [Concomitant]
     Active Substance: PREDNISONE
     Indication: Colitis ulcerative
     Dosage: 5 MG
  8. PREDNISONE [Concomitant]
     Active Substance: PREDNISONE
     Dosage: 30 MG, 1X/DAY
     Route: 048
  9. PREDNISONE [Concomitant]
     Active Substance: PREDNISONE
     Dosage: 30 MG, 1X/DAY FOR 3 WEEKS
     Route: 048
     Dates: start: 20220409
  10. PREDNISONE [Concomitant]
     Active Substance: PREDNISONE
     Dosage: 1 DF, 1X/DAY, DECREASING DOSE FROM 30 MG DAILY TO 5 MG DAILY
     Route: 048
     Dates: start: 202204, end: 20220503
  11. PREDNISONE [Concomitant]
     Active Substance: PREDNISONE
     Dosage: 1 DF TAPERING DOSE
     Route: 065
     Dates: start: 202205
  12. PREDNISONE [Concomitant]
     Active Substance: PREDNISONE
     Dosage: 15 MG, 1X/DAY
     Route: 048
     Dates: start: 20220613
  13. PREDNISONE [Concomitant]
     Active Substance: PREDNISONE
     Dosage: 5 MG, 1X/DAY
     Route: 048
  14. PREDNISONE [Concomitant]
     Active Substance: PREDNISONE
     Dosage: 10 MG, 1X/DAY
     Route: 048
  15. PREDNISONE [Concomitant]
     Active Substance: PREDNISONE
     Dosage: 15 MG, 1X/DAY
     Route: 048
     Dates: start: 2022

REACTIONS (12)
  - Diarrhoea haemorrhagic [Not Recovered/Not Resolved]
  - Condition aggravated [Not Recovered/Not Resolved]
  - Drug ineffective [Unknown]
  - Therapeutic response shortened [Unknown]
  - Off label use [Unknown]
  - Inappropriate schedule of product administration [Unknown]
  - Abdominal pain [Unknown]
  - Malaise [Not Recovered/Not Resolved]
  - Frequent bowel movements [Recovering/Resolving]
  - Diarrhoea [Not Recovered/Not Resolved]
  - Defaecation urgency [Not Recovered/Not Resolved]
  - Steroid dependence [Unknown]

NARRATIVE: CASE EVENT DATE: 20220228
